FAERS Safety Report 12892258 (Version 1)
Quarter: 2016Q4

REPORT INFORMATION
  Report Type: Spontaneous
  Country: US (occurrence: US)
  Receive Date: 20161026
  Receipt Date: 20161026
  Transmission Date: 20170207
  Serious: Yes (Disabling)
  Sender: FDA-Public Use
  Company Number: None

PATIENT
  Age: 64 Year
  Sex: Female
  Weight: 65.32 kg

DRUGS (8)
  1. PROLIA [Suspect]
     Active Substance: DENOSUMAB
     Indication: OSTEOPENIA
     Dosage: PROLIA - INJECTION - EVERY 6 MONTHS
     Dates: start: 20160713, end: 20160713
  2. ZEGENID [Concomitant]
  3. EYE DROPS [Concomitant]
     Active Substance: TETRAHYDROZOLINE HYDROCHLORIDE
  4. LATANOPROST. [Concomitant]
     Active Substance: LATANOPROST
  5. CALTRATE W/ VITAMIN D [Concomitant]
  6. DORZOLOMIDE [Concomitant]
     Active Substance: DORZOLAMIDE
  7. SPIRONOLACTONE. [Concomitant]
     Active Substance: SPIRONOLACTONE
  8. VITAMIN D [Concomitant]
     Active Substance: CHOLECALCIFEROL

REACTIONS (3)
  - Bone loss [None]
  - Osteoporosis [None]
  - Osteopenia [None]

NARRATIVE: CASE EVENT DATE: 20160908
